FAERS Safety Report 6822144-7 (Version None)
Quarter: 2010Q3

REPORT INFORMATION
  Report Type: 
  Country: None (occurrence: None)
  Receive Date: 20100706
  Receipt Date: 20100706
  Transmission Date: 20110219
  Serious: No
  Sender: FDA-Public Use
  Company Number: None

PATIENT
  Age: 73 Year
  Sex: Male
  Weight: 79.8 kg

DRUGS (1)
  1. LEVOFLOXACIN [Suspect]
     Indication: PNEUMONIA
     Dosage: 500 MG EVERY DAY IV
     Route: 042
     Dates: start: 20100528, end: 20100604

REACTIONS (4)
  - ECCHYMOSIS [None]
  - OEDEMA PERIPHERAL [None]
  - TENDON PAIN [None]
  - TENDON RUPTURE [None]
